FAERS Safety Report 6996407-9 (Version None)
Quarter: 2010Q3

REPORT INFORMATION
  Report Type: 
  Country: None (occurrence: None)
  Receive Date: 20100918
  Receipt Date: 20090310
  Transmission Date: 20110219
  Serious: No
  Sender: FDA-Public Use
  Company Number: US-WYE-H08531209

PATIENT
  Sex: Female
  Weight: 56.75 kg

DRUGS (4)
  1. EFFEXOR XR [Suspect]
     Indication: DEPRESSION
     Dosage: 75 MG, FREQUENCY NOT SPECIFED
     Route: 048
     Dates: start: 20070501
  2. EFFEXOR XR [Suspect]
     Indication: GENERALISED ANXIETY DISORDER
  3. LIPITOR [Concomitant]
  4. VERAPAMIL [Concomitant]

REACTIONS (8)
  - ABNORMAL DREAMS [None]
  - AMNESIA [None]
  - DRY MOUTH [None]
  - PHOTOPSIA [None]
  - RETINAL TEAR [None]
  - TREMOR [None]
  - VITREOUS FLOATERS [None]
  - WEIGHT INCREASED [None]
